FAERS Safety Report 17184965 (Version 1)
Quarter: 2019Q4

REPORT INFORMATION
  Report Type: Spontaneous
  Country: US (occurrence: US)
  Receive Date: 20191219
  Receipt Date: 20191219
  Transmission Date: 20200122
  Serious: Yes (Hospitalization)
  Sender: FDA-Public Use
  Company Number: None

PATIENT
  Age: 55 Year
  Sex: Female
  Weight: 76.8 kg

DRUGS (10)
  1. FERRIC CITRATE 1G [Concomitant]
  2. GABAPENTIN 100MG [Concomitant]
     Active Substance: GABAPENTIN
  3. POTASSIUM CHLORIDE 20MEQ [Concomitant]
     Active Substance: POTASSIUM CHLORIDE
  4. SERTRALINE [Concomitant]
     Active Substance: SERTRALINE HYDROCHLORIDE
  5. LOSARTAN 100MG [Concomitant]
     Active Substance: LOSARTAN
  6. VITAMIN D 50,000 UNITS [Concomitant]
  7. CARVEDILOL 25MG [Concomitant]
     Active Substance: CARVEDILOL
  8. FENOFIBRATE 145MG [Concomitant]
  9. BEZLOTOXUMAB [Suspect]
     Active Substance: BEZLOTOXUMAB
     Indication: CLOSTRIDIUM DIFFICILE INFECTION
     Route: 042
     Dates: start: 20191212, end: 20191212
  10. ROSUVASTATIN 40MG [Concomitant]
     Active Substance: ROSUVASTATIN

REACTIONS (4)
  - Hypotension [None]
  - Cardiac tamponade [None]
  - Pericardial effusion [None]
  - Organising pneumonia [None]

NARRATIVE: CASE EVENT DATE: 20191212
